FAERS Safety Report 4302693-6 (Version None)
Quarter: 2004Q1

REPORT INFORMATION
  Report Type: 
  Country: None (occurrence: None)
  Receive Date: 20040223
  Receipt Date: 20040223
  Transmission Date: 20041129
  Serious: Yes (Life-Threatening, Hospitalization)
  Sender: FDA-Public Use
  Company Number: None

PATIENT
  Age: 75 Year
  Sex: Male

DRUGS (8)
  1. LISINOPRIL [Suspect]
     Indication: HYPERTENSION
     Dosage: 10 MG QD ORAL
     Route: 048
     Dates: start: 20030829, end: 20030905
  2. ACEON-PERINDOPRIL [Concomitant]
  3. LISINOPRIL [Concomitant]
  4. XALATAN 0.005%- LATANOPROST- [Concomitant]
  5. TUMS-CALCIUM CARBONATE- [Concomitant]
  6. ASPIRIN [Concomitant]
  7. LEVAQUIN [Concomitant]
  8. ZOSYN-PIPPERCILLIN/TAZOBACTAM [Concomitant]

REACTIONS (1)
  - ANGIONEUROTIC OEDEMA [None]
